FAERS Safety Report 6496790-7 (Version None)
Quarter: 2009Q4

REPORT INFORMATION
  Report Type: 
  Country: None (occurrence: None)
  Receive Date: 20091125
  Receipt Date: 20090326
  Transmission Date: 20100525
  Serious: Yes (Hospitalization)
  Sender: FDA-Public Use
  Company Number: 2009BH004904

PATIENT
  Age: 56 Year
  Sex: Male

DRUGS (12)
  1. DIANEAL [Suspect]
     Indication: PERITONEAL DIALYSIS
     Dosage: 15 L; EVERY DAY; IP
     Route: 033
     Dates: start: 20070613
  2. DIANEAL [Suspect]
     Indication: PERITONEAL DIALYSIS
     Dosage: PRN; IP
     Route: 033
     Dates: start: 20070613
  3. EXTRANEAL [Suspect]
     Indication: PERITONEAL DIALYSIS
     Dosage: 2 L; EVERY DAY; IP
     Route: 033
     Dates: start: 20090101
  4. COREG [Concomitant]
  5. LISINOPRIL [Concomitant]
  6. SENSIPAR [Concomitant]
  7. RENAGEL [Concomitant]
  8. GENTAMICIN OINTMENT [Concomitant]
  9. ZEMPLAR [Concomitant]
  10. GLYBURIDE [Concomitant]
  11. CIPRO [Concomitant]
  12. EPOGEN [Concomitant]

REACTIONS (2)
  - CONSTIPATION [None]
  - PERITONITIS BACTERIAL [None]
